FAERS Safety Report 6725667-4 (Version None)
Quarter: 2010Q2

REPORT INFORMATION
  Report Type: 
  Country: None (occurrence: None)
  Receive Date: 20100514
  Receipt Date: 20100510
  Transmission Date: 20101027
  Serious: Yes (Death)
  Sender: FDA-Public Use
  Company Number: GB-ROCHE-702272

PATIENT
  Sex: Male
  Weight: 80 kg

DRUGS (3)
  1. CAPECITABINE [Suspect]
     Dosage: DATE OF MOST RECENT ADMINISTRATION: 20 APRIL 2010
     Route: 065
     Dates: start: 20100309
  2. EPIRUBICIN [Suspect]
     Dosage: DATE OF MOST RECENT ADMINISTRATION: 20 APRIL 2010
     Route: 065
     Dates: start: 20100309
  3. CISPLATIN [Suspect]
     Dosage: DATE OF MOST RECENT ADMINISTRATION: 20 APRIL 2010
     Route: 065
     Dates: start: 20100309

REACTIONS (1)
  - PULMONARY EMBOLISM [None]
